FAERS Safety Report 5741783-8 (Version None)
Quarter: 2008Q2

REPORT INFORMATION
  Report Type: 
  Country: None (occurrence: None)
  Receive Date: 20080519
  Receipt Date: 20080515
  Transmission Date: 20081010
  Serious: Yes (Hospitalization)
  Sender: FDA-Public Use
  Company Number: BE-BAYER-200816896GPV

PATIENT
  Age: 27 Year
  Sex: Female
  Weight: 56 kg

DRUGS (2)
  1. BETAFERON [Suspect]
     Indication: MULTIPLE SCLEROSIS
     Route: 058
     Dates: start: 20020701
  2. VALENFAXINE EXEL [Concomitant]
     Indication: STRESS
     Dosage: UNIT DOSE: 75 MG
     Route: 048
     Dates: start: 20060301

REACTIONS (1)
  - INJECTION SITE ABSCESS [None]
